FAERS Safety Report 6867934-X (Version None)
Quarter: 2010Q3

REPORT INFORMATION
  Report Type: 
  Country: None (occurrence: None)
  Receive Date: 20100721
  Receipt Date: 20100721
  Transmission Date: 20110219
  Serious: No
  Sender: FDA-Public Use
  Company Number: None

PATIENT
  Age: 59 Year
  Sex: Male
  Weight: 96 kg

DRUGS (1)
  1. BUPIVACAINE HCL [Suspect]
     Indication: SURGERY
     Dosage: 15 MG ONCE OTHER
     Route: 050
     Dates: start: 20100623, end: 20100623

REACTIONS (1)
  - NO THERAPEUTIC RESPONSE [None]
